FAERS Safety Report 9621314 (Version 1)
Quarter: 2013Q4

REPORT INFORMATION
  Report Type: Report from Study
  Country: DE (occurrence: DE)
  Receive Date: 20131015
  Receipt Date: 20131015
  Transmission Date: 20140711
  Serious: Yes (Hospitalization)
  Sender: FDA-Public Use
  Company Number: DE-SA-2013SA100497

PATIENT
  Age: 55 Year
  Sex: Female
  Weight: 69 kg

DRUGS (7)
  1. LEFLUNOMIDE [Suspect]
     Indication: RHEUMATOID ARTHRITIS
     Route: 048
     Dates: start: 200710
  2. INVESTIGATIONAL DRUG [Suspect]
     Indication: RHEUMATOID ARTHRITIS
     Route: 048
     Dates: start: 20101018
  3. RAMIPRIL [Concomitant]
     Indication: HYPERTENSION
     Dates: start: 200708
  4. PANTOPRAZOLE [Concomitant]
     Dates: start: 2012
  5. DICLOFENAC [Concomitant]
     Indication: RHEUMATOID ARTHRITIS
     Dates: start: 201210, end: 20130716
  6. SYNTESTAN [Concomitant]
     Indication: RHEUMATOID ARTHRITIS
     Dates: start: 2010
  7. LEVOTHYROXINE [Concomitant]
     Dates: start: 1990

REACTIONS (3)
  - Vestibular neuronitis [Recovered/Resolved]
  - Dizziness [Recovered/Resolved]
  - Vomiting [Recovered/Resolved]
